FAERS Safety Report 5826357-2 (Version None)
Quarter: 2008Q3

REPORT INFORMATION
  Report Type: 
  Country: None (occurrence: None)
  Receive Date: 20080729
  Receipt Date: 20080710
  Transmission Date: 20090109
  Serious: No
  Sender: FDA-Public Use
  Company Number: US-BOEHRINGER INGELHEIM GMBH, GERMANY-2008-BP-09966BP

PATIENT
  Sex: Female

DRUGS (11)
  1. SPIRIVA [Suspect]
     Indication: CHRONIC OBSTRUCTIVE PULMONARY DISEASE
     Dates: start: 20060101
  2. COMBIVENT [Concomitant]
     Indication: DYSPNOEA
  3. LIPITOR [Concomitant]
  4. PROTONIX [Concomitant]
  5. PLAVIX [Concomitant]
  6. METOPROLOL TARTRATE [Concomitant]
  7. CALCIUM [Concomitant]
  8. MAGNESIUM SULFATE [Concomitant]
  9. ZINC [Concomitant]
  10. FISH OIL [Concomitant]
  11. VITAMIN E [Concomitant]

REACTIONS (1)
  - DRUG EFFECT DECREASED [None]
